FAERS Safety Report 9356118 (Version 1)
Quarter: 2013Q2

REPORT INFORMATION
  Report Type: Spontaneous
  Country: IT (occurrence: None)
  Receive Date: 20130614
  Receipt Date: 20130614
  Transmission Date: 20140414
  Serious: Yes (Hospitalization)
  Sender: FDA-Public Use
  Company Number: AUR-APL-2013-04842

PATIENT
  Age: 25 Year
  Sex: Male

DRUGS (2)
  1. AMOXICILLIN (AMOXICILLIN) [Suspect]
     Indication: PHARYNGITIS
     Dosage: 1 D
     Route: 048
     Dates: start: 20130521, end: 20130525
  2. SYNFLEX [Suspect]
     Indication: PYREXIA
     Dosage: 2 DOSAGE FORMS, TOTAL
     Route: 048
     Dates: start: 20130521, end: 20130525

REACTIONS (3)
  - Pruritus [None]
  - Rash [None]
  - Hepatitis toxic [None]
